FAERS Safety Report 4698796-7 (Version None)
Quarter: 2005Q2

REPORT INFORMATION
  Report Type: 
  Country: None (occurrence: None)
  Receive Date: 20050621
  Receipt Date: 20040602
  Transmission Date: 20051028
  Serious: Yes (Other)
  Sender: FDA-Public Use
  Company Number: PHEH2004US06145

PATIENT
  Age: 90 Year
  Sex: Female

DRUGS (8)
  1. EXELON [Suspect]
     Indication: DEMENTIA ALZHEIMER'S TYPE
  2. DIOVAN ^NORVARTIS^ (VALSARTAN) [Concomitant]
  3. LASIX (FUROSEMIDE, FUROSEMIDE SODIUM) [Concomitant]
  4. ISOSORBIDE [Concomitant]
  5. SYNTHROID [Concomitant]
  6. TRAMADOL [Concomitant]
  7. ZANTAC [Concomitant]
  8. ZYPREXA [Concomitant]

REACTIONS (2)
  - HALLUCINATION, AUDITORY [None]
  - HALLUCINATION, VISUAL [None]
